FAERS Safety Report 23506161 (Version 2)
Quarter: 2024Q1

REPORT INFORMATION
  Report Type: Report from Study
  Country: US (occurrence: None)
  Receive Date: 20240209
  Receipt Date: 20240304
  Transmission Date: 20240409
  Serious: Yes (Other)
  Sender: FDA-Public Use
  Company Number: 2024A027755

PATIENT
  Sex: Female

DRUGS (1)
  1. SYMBICORT [Suspect]
     Active Substance: BUDESONIDE\FORMOTEROL FUMARATE DIHYDRATE
     Dosage: UNKNOWN UNKNOWN
     Route: 055

REACTIONS (3)
  - Dyspnoea [Unknown]
  - Lung disorder [Unknown]
  - Immunodeficiency common variable [Unknown]
